FAERS Safety Report 9631072 (Version 1)
Quarter: 2013Q4

REPORT INFORMATION
  Report Type: Spontaneous
  Country: SE (occurrence: SE)
  Receive Date: 20131018
  Receipt Date: 20131018
  Transmission Date: 20140711
  Serious: Yes (Other)
  Sender: FDA-Public Use
  Company Number: SE-PFIZER INC-2013291935

PATIENT
  Age: 63 Year
  Sex: Male

DRUGS (1)
  1. XALATAN [Suspect]
     Dosage: UNK
     Dates: start: 201301

REACTIONS (4)
  - Eye swelling [Unknown]
  - Product formulation issue [Unknown]
  - Eye irritation [Unknown]
  - Eyelid oedema [Unknown]
